FAERS Safety Report 12728110 (Version 1)
Quarter: 2016Q3

REPORT INFORMATION
  Report Type: Spontaneous
  Country: US (occurrence: US)
  Receive Date: 20160907
  Receipt Date: 20160907
  Transmission Date: 20161109
  Serious: No
  Sender: FDA-Public Use
  Company Number: None

PATIENT
  Age: 40 Year
  Sex: Female
  Weight: 90 kg

DRUGS (8)
  1. MAGNESIUM EFFERVESCENT [Concomitant]
  2. LIVER SUPPORT (MILK THISTLE, GLOBE ARTICHOKE, TURMERIC) [Concomitant]
  3. NEXIUM [Concomitant]
     Active Substance: ESOMEPRAZOLE MAGNESIUM
  4. CHEWABLE SUGARLESS C [Concomitant]
  5. MOBILIS [Concomitant]
  6. VITAMIN D [Concomitant]
     Active Substance: CHOLECALCIFEROL
  7. HARVONI [Suspect]
     Active Substance: LEDIPASVIR\SOFOSBUVIR
     Indication: HEPATITIS C
     Dosage: 5 TABLET DAILY ORAL
     Route: 048
     Dates: start: 20160903
  8. APPLE CIDER VINEGAR [Concomitant]
     Active Substance: APPLE CIDER VINEGAR

REACTIONS (14)
  - Renal pain [None]
  - Fear [None]
  - Abdominal pain upper [None]
  - Dizziness [None]
  - Palpitations [None]
  - Gingival swelling [None]
  - Migraine [None]
  - Feeling abnormal [None]
  - Tinnitus [None]
  - Gallbladder pain [None]
  - Faeces discoloured [None]
  - Constipation [None]
  - Vision blurred [None]
  - Back pain [None]

NARRATIVE: CASE EVENT DATE: 20160904
